FAERS Safety Report 17076443 (Version 1)
Quarter: 2019Q4

REPORT INFORMATION
  Report Type: Spontaneous
  Country: US (occurrence: US)
  Receive Date: 20191029
  Receipt Date: 20191029
  Transmission Date: 20200122
  Serious: Yes (Hospitalization)
  Sender: FDA-Public Use
  Company Number: None

PATIENT
  Age: 52 Year
  Sex: Male

DRUGS (1)
  1. DOFETILIDE 500MCG CAP [Suspect]
     Active Substance: DOFETILIDE
     Route: 058
     Dates: start: 20190925

REACTIONS (2)
  - Arrhythmia [None]
  - Drug ineffective [None]

NARRATIVE: CASE EVENT DATE: 20191028
